FAERS Safety Report 5144409-X (Version None)
Quarter: 2006Q4

REPORT INFORMATION
  Report Type: 
  Country: None (occurrence: None)
  Receive Date: 20061031
  Receipt Date: 20061019
  Transmission Date: 20070319
  Serious: Yes (Other)
  Sender: FDA-Public Use
  Company Number: 2006120849

PATIENT
  Age: 70 Year
  Sex: Male

DRUGS (3)
  1. NORVASC [Suspect]
     Dosage: 2.5 MG
  2. HYZAAR [Suspect]
     Dosage: 12.5 MG
  3. ATENOLOL [Suspect]
     Dosage: 25 MG

REACTIONS (1)
  - DIABETES MELLITUS [None]
